FAERS Safety Report 14208474 (Version 2)
Quarter: 2017Q4

REPORT INFORMATION
  Report Type: Spontaneous
  Country: JP (occurrence: JP)
  Receive Date: 20171121
  Receipt Date: 20171129
  Transmission Date: 20180321
  Serious: No
  Sender: FDA-Public Use
  Company Number: JP-PFIZER INC-2017499547

PATIENT
  Age: 6 Decade
  Sex: Female

DRUGS (4)
  1. EXCEGRAN [Suspect]
     Active Substance: ZONISAMIDE
     Dosage: UNK
     Route: 048
  2. FOSPHENYTOIN SODIUM. [Suspect]
     Active Substance: FOSPHENYTOIN SODIUM
     Dosage: UNK
  3. TAKEPRON [Suspect]
     Active Substance: LANSOPRAZOLE
     Dosage: UNK
  4. TEMODAL [Suspect]
     Active Substance: TEMOZOLOMIDE
     Dosage: UNK
     Route: 065

REACTIONS (3)
  - Erythema [Recovered/Resolved]
  - Rash [Recovered/Resolved]
  - Pruritus generalised [Recovered/Resolved]

NARRATIVE: CASE EVENT DATE: 20140423
